FAERS Safety Report 9048869 (Version 1)
Quarter: 2013Q1

REPORT INFORMATION
  Report Type: Spontaneous
  Country: US (occurrence: None)
  Receive Date: 20130129
  Receipt Date: 20130129
  Transmission Date: 20140127
  Serious: No
  Sender: FDA-Public Use
  Company Number: None

PATIENT
  Age: 35 Year
  Sex: Male

DRUGS (2)
  1. CITALOPRAM 40 MG [Suspect]
     Indication: ANXIETY
     Dosage: 1/2  PO  ORALLY
     Route: 048
     Dates: start: 20110911, end: 20110927
  2. LORAZEPAM [Concomitant]

REACTIONS (2)
  - Drug ineffective [None]
  - Product substitution issue [None]
